FAERS Safety Report 6726395-1 (Version None)
Quarter: 2010Q2

REPORT INFORMATION
  Report Type: 
  Country: None (occurrence: None)
  Receive Date: 20100514
  Receipt Date: 20100506
  Transmission Date: 20101027
  Serious: Yes (Other)
  Sender: FDA-Public Use
  Company Number: B0652370A

PATIENT
  Sex: Female

DRUGS (1)
  1. VENTOLIN DISKUS [Suspect]
     Indication: ASTHMA
     Route: 055

REACTIONS (5)
  - ASTHMA [None]
  - DYSPNOEA [None]
  - LUNG DISORDER [None]
  - MALAISE [None]
  - PRODUCT QUALITY ISSUE [None]
